FAERS Safety Report 14605987 (Version 1)
Quarter: 2018Q1

REPORT INFORMATION
  Report Type: Spontaneous
  Country: CA (occurrence: CA)
  Receive Date: 20180307
  Receipt Date: 20180307
  Transmission Date: 20180509
  Serious: Yes (Death, Life-Threatening, Hospitalization)
  Sender: FDA-Public Use
  Company Number: CA-ROCHE-2019024

PATIENT
  Age: 4 Year
  Sex: Female

DRUGS (7)
  1. ACTEMRA [Suspect]
     Active Substance: TOCILIZUMAB
     Route: 065
     Dates: start: 20160208
  2. ACTEMRA [Suspect]
     Active Substance: TOCILIZUMAB
     Route: 065
     Dates: start: 20160210
  3. FLUDARABINE [Concomitant]
     Active Substance: FLUDARABINE PHOSPHATE
     Route: 065
     Dates: start: 20160122, end: 20160125
  4. SILTUXIMAB [Concomitant]
     Active Substance: SILTUXIMAB
     Route: 065
     Dates: start: 20160211
  5. TISAGENLECLEUCEL. [Suspect]
     Active Substance: TISAGENLECLEUCEL
     Indication: ACUTE LYMPHOCYTIC LEUKAEMIA
     Dosage: DOSAGE IS UNCERTAIN.
     Route: 041
     Dates: start: 20160203
  6. CYCLOPHOSPHAMIDE. [Concomitant]
     Active Substance: CYCLOPHOSPHAMIDE
     Route: 065
     Dates: start: 20160122, end: 20160123
  7. ACTEMRA [Suspect]
     Active Substance: TOCILIZUMAB
     Indication: CYTOKINE RELEASE SYNDROME
     Route: 065
     Dates: start: 20160205

REACTIONS (14)
  - Renal tubular necrosis [Recovered/Resolved]
  - Cholestasis [Recovered/Resolved]
  - Conjunctivitis [Recovered/Resolved]
  - Neutrophil count decreased [Recovered/Resolved]
  - Systemic inflammatory response syndrome [Not Recovered/Not Resolved]
  - Encephalopathy [Recovered/Resolved]
  - Hypernatraemia [Recovered/Resolved]
  - Encephalitis [Fatal]
  - Dyspnoea [Not Recovered/Not Resolved]
  - Acute respiratory distress syndrome [Recovered/Resolved]
  - Multiple organ dysfunction syndrome [Recovered/Resolved]
  - Rhabdomyolysis [Recovered/Resolved]
  - Acute kidney injury [Recovered/Resolved]
  - Localised infection [Not Recovered/Not Resolved]

NARRATIVE: CASE EVENT DATE: 20160206
